FAERS Safety Report 13726749 (Version 2)
Quarter: 2017Q3

REPORT INFORMATION
  Report Type: Spontaneous
  Country: US (occurrence: US)
  Receive Date: 20170706
  Receipt Date: 20170814
  Transmission Date: 20171127
  Serious: No
  Sender: FDA-Public Use
  Company Number: US-PFIZER INC-2017292608

PATIENT
  Age: 79 Year
  Sex: Female
  Weight: 90.72 kg

DRUGS (4)
  1. PREDNISONE TAPER [Concomitant]
     Active Substance: PREDNISONE
     Indication: LYMPHADENOPATHY
  2. GABAPENTIN. [Suspect]
     Active Substance: GABAPENTIN
     Dosage: 300 MG, DAILY
     Route: 048
     Dates: start: 20170620, end: 20170625
  3. NEURONTIN [Suspect]
     Active Substance: GABAPENTIN
     Indication: HERPES ZOSTER
     Dosage: 300 MG, 1X/DAY
     Dates: start: 20170620, end: 20170624
  4. PREDNISONE TAPER [Concomitant]
     Active Substance: PREDNISONE
     Indication: HERPES ZOSTER
     Dosage: UNK
     Dates: start: 20170619, end: 20170624

REACTIONS (3)
  - Drug ineffective [Not Recovered/Not Resolved]
  - Gait disturbance [Recovered/Resolved]
  - Disturbance in attention [Recovered/Resolved]

NARRATIVE: CASE EVENT DATE: 20170620
